FAERS Safety Report 19057042 (Version 2)
Quarter: 2021Q2

REPORT INFORMATION
  Report Type: Spontaneous
  Country: US (occurrence: US)
  Receive Date: 20210324
  Receipt Date: 20210416
  Transmission Date: 20210717
  Serious: No
  Sender: FDA-Public Use
  Company Number: US-TEVA-2021-US-1892439

PATIENT
  Sex: Female

DRUGS (4)
  1. CLONAZEPAM TEVA [Suspect]
     Active Substance: CLONAZEPAM
     Indication: ANXIETY
  2. CLONAZEPAM TEVA [Suspect]
     Active Substance: CLONAZEPAM
     Indication: DYSKINESIA
  3. CLONAZEPAM TEVA [Suspect]
     Active Substance: CLONAZEPAM
     Indication: EPILEPSY
  4. CLONAZEPAM TEVA [Suspect]
     Active Substance: CLONAZEPAM
     Indication: FIBROMYALGIA
     Route: 065
     Dates: start: 20210313

REACTIONS (16)
  - Withdrawal syndrome [Unknown]
  - Product use in unapproved indication [Unknown]
  - Impaired driving ability [Unknown]
  - Loss of personal independence in daily activities [Unknown]
  - Bone pain [Unknown]
  - Tremor [Unknown]
  - Nightmare [Unknown]
  - Feeling abnormal [Unknown]
  - Off label use [Unknown]
  - Product substitution issue [Unknown]
  - Movement disorder [Unknown]
  - Insomnia [Unknown]
  - Headache [Unknown]
  - Eating disorder [Unknown]
  - Dysphagia [Unknown]
  - Nervousness [Unknown]

NARRATIVE: CASE EVENT DATE: 202103
